FAERS Safety Report 5120226-1 (Version None)
Quarter: 2006Q4

REPORT INFORMATION
  Report Type: 
  Country: None (occurrence: None)
  Receive Date: 20061004
  Receipt Date: 20060929
  Transmission Date: 20070319
  Serious: Yes (Other)
  Sender: FDA-Public Use
  Company Number: GB-BRISTOL-MYERS SQUIBB COMPANY-13525548

PATIENT
  Age: 24 Year
  Sex: Female

DRUGS (2)
  1. SUSTIVA [Suspect]
     Route: 048
  2. KIVEXA [Suspect]
     Dosage: ABACAVIR 600 MG + LAMIVUDINE 300 MG
     Route: 048

REACTIONS (2)
  - PSYCHOTIC DISORDER [None]
  - RENAL IMPAIRMENT [None]
